FAERS Safety Report 16740272 (Version 5)
Quarter: 2021Q2

REPORT INFORMATION
  Report Type: Report from Study
  Country: US (occurrence: US)
  Receive Date: 20190826
  Receipt Date: 20210408
  Transmission Date: 20210716
  Serious: Yes (Other)
  Sender: FDA-Public Use
  Company Number: US-PFIZER INC-2019363920

PATIENT
  Age: 37 Year
  Sex: Female

DRUGS (4)
  1. IBRANCE [Suspect]
     Active Substance: PALBOCICLIB
     Dosage: 125 MG, CYCLIC; (DAILY FOR 21 DAYS OF 28 DAY CYCLE)
     Route: 048
     Dates: start: 20210302
  2. IBRANCE [Suspect]
     Active Substance: PALBOCICLIB
     Dosage: 125 MG, CYCLIC (DAILY FOR 21 DAYS OF 28 DAY CYCLE)
     Route: 048
     Dates: start: 20200409
  3. IBRANCE [Suspect]
     Active Substance: PALBOCICLIB
     Indication: BREAST CANCER FEMALE
     Dosage: 125 MG, CYCLIC, (DAILY FOR 21 DAYS OF 28 DAY CYCLE)
     Route: 048
     Dates: start: 20190416
  4. IBRANCE [Suspect]
     Active Substance: PALBOCICLIB
     Dosage: 125 MG, CYCLIC, (DAILY FOR 21 DAYS OF 28 DAY CYCLE)
     Route: 048
     Dates: end: 201909

REACTIONS (7)
  - Nausea [Not Recovered/Not Resolved]
  - Influenza [Unknown]
  - Neoplasm progression [Unknown]
  - Fatigue [Not Recovered/Not Resolved]
  - Malaise [Unknown]
  - Intentional dose omission [Unknown]
  - Myelosuppression [Recovered/Resolved]

NARRATIVE: CASE EVENT DATE: 2019
